FAERS Safety Report 24143722 (Version 1)
Quarter: 2024Q3

REPORT INFORMATION
  Report Type: Spontaneous
  Country: SG (occurrence: SG)
  Receive Date: 20240727
  Receipt Date: 20240727
  Transmission Date: 20241016
  Serious: Yes (Other)
  Sender: GLAXOSMITHKLINE
  Company Number: SG-GLAXOSMITHKLINE-SG2024APC091953

PATIENT

DRUGS (1)
  1. FLUTICASONE FUROATE [Suspect]
     Active Substance: FLUTICASONE FUROATE
     Indication: Product used for unknown indication
     Dosage: UNK

REACTIONS (1)
  - Throat tightness [Unknown]

NARRATIVE: CASE EVENT DATE: 20240511
